FAERS Safety Report 9126264 (Version 2)
Quarter: 2013Q1

REPORT INFORMATION
  Report Type: Report from Study
  Country: US (occurrence: US)
  Receive Date: 20130117
  Receipt Date: 20130306
  Transmission Date: 20140127
  Serious: Yes (Hospitalization)
  Sender: FDA-Public Use
  Company Number: US-ROCHE-1179182

PATIENT
  Age: 4 Year
  Sex: Male
  Weight: 19.3 kg

DRUGS (5)
  1. BEVACIZUMAB [Suspect]
     Indication: GLIOBLASTOMA MULTIFORME
     Dosage: MAINTENANCE THERAPY: 10 MG/KG OVER 30-90 MINUTES ON DAYS 1 AND 15
     Route: 042
     Dates: start: 20120418
  2. TEMOZOLOMIDE [Suspect]
     Indication: GLIOBLASTOMA MULTIFORME
     Dosage: MAINTENANCE THERAPY
     Route: 048
     Dates: start: 20120418
  3. TEMOZOLOMIDE [Suspect]
     Route: 048
     Dates: start: 20121129, end: 20121202
  4. ZOFRAN [Concomitant]
  5. MOTRIN [Concomitant]

REACTIONS (3)
  - Haemorrhage intracranial [Recovering/Resolving]
  - Convulsion [Recovered/Resolved]
  - Subdural haematoma evacuation [Recovered/Resolved]
